FAERS Safety Report 17925988 (Version 5)
Quarter: 2021Q1

REPORT INFORMATION
  Report Type: Spontaneous
  Country: FR (occurrence: FR)
  Receive Date: 20200622
  Receipt Date: 20210323
  Transmission Date: 20210419
  Serious: Yes (Disabling)
  Sender: FDA-Public Use
  Company Number: FR-CELGENEUS-FRA-20200408276

PATIENT
  Age: 65 Year
  Sex: Male
  Weight: 83 kg

DRUGS (23)
  1. DEXAMETHASONE. [Suspect]
     Active Substance: DEXAMETHASONE
     Indication: PLASMA CELL MYELOMA
     Dosage: 40 MILLIGRAM
     Route: 048
     Dates: start: 20191029
  2. VELCADE [Concomitant]
     Active Substance: BORTEZOMIB
     Route: 058
     Dates: end: 20200131
  3. LAROXYL [Concomitant]
     Active Substance: AMITRIPTYLINE HYDROCHLORIDE
     Indication: PLASMA CELL MYELOMA
     Dosage: 40 MILLIGRAM  MG/ML/TWO DROPS
     Route: 065
     Dates: start: 20190926
  4. LENALIDOMIDE [Suspect]
     Active Substance: LENALIDOMIDE
     Indication: PLASMA CELL MYELOMA
     Dosage: 25 MILLIGRAM
     Route: 048
     Dates: start: 20191029, end: 20200404
  5. DEXAMETHASONE. [Suspect]
     Active Substance: DEXAMETHASONE
     Dosage: 20 MILLIGRAM
     Route: 048
     Dates: start: 20200503
  6. BACTRIM [Concomitant]
     Active Substance: SULFAMETHOXAZOLE\TRIMETHOPRIM
     Indication: PLASMA CELL MYELOMA
     Route: 065
     Dates: start: 20191029, end: 20200519
  7. BORTEZOMIB. [Concomitant]
     Active Substance: BORTEZOMIB
     Indication: PLASMA CELL MYELOMA
     Route: 058
     Dates: start: 20191029
  8. PENTACARINAT [Concomitant]
     Active Substance: PENTAMIDINE ISETHIONATE
     Indication: INFECTION PROPHYLAXIS
     Dosage: 300 MILLIGRAM
     Route: 045
     Dates: start: 20190519
  9. VELCADE [Concomitant]
     Active Substance: BORTEZOMIB
     Indication: PLASMA CELL MYELOMA
     Route: 058
     Dates: start: 20191029, end: 20200131
  10. ZOPICLONE [Concomitant]
     Active Substance: ZOPICLONE
     Indication: PLASMA CELL MYELOMA
     Route: 065
     Dates: start: 20191112
  11. LOVENOX [Concomitant]
     Active Substance: ENOXAPARIN SODIUM
     Indication: PRODUCT USED FOR UNKNOWN INDICATION
     Dosage: 4000 IU (INTERNATIONAL UNIT)
     Route: 058
     Dates: start: 20191029
  12. BORTEZOMIB. [Concomitant]
     Active Substance: BORTEZOMIB
     Route: 058
     Dates: end: 20200131
  13. DARATUMUMAB [Concomitant]
     Active Substance: DARATUMUMAB
     Indication: PLASMA CELL MYELOMA
     Dosage: 1800 MILLIGRAM
     Route: 058
     Dates: start: 20191029, end: 20200325
  14. ZELITREX [Concomitant]
     Active Substance: VALACYCLOVIR HYDROCHLORIDE
     Indication: PLASMA CELL MYELOMA
     Route: 065
     Dates: start: 20191029, end: 20200519
  15. DARATUMUMAB [Concomitant]
     Active Substance: DARATUMUMAB
     Dosage: 1800 MILLIGRAM
     Route: 058
     Dates: end: 20200506
  16. AMOXICILLIN. [Concomitant]
     Active Substance: AMOXICILLIN
     Indication: PLASMA CELL MYELOMA
     Route: 065
     Dates: start: 20191029
  17. LEVOFLOXACIN. [Concomitant]
     Active Substance: LEVOFLOXACIN
     Indication: PLASMA CELL MYELOMA
     Route: 065
     Dates: start: 20191029
  18. PARACETAMOL [Concomitant]
     Active Substance: ACETAMINOPHEN
     Indication: PRODUCT USED FOR UNKNOWN INDICATION
     Dosage: 0.3333 1 DOSAGE FORMS
     Route: 048
     Dates: start: 2019
  19. ACLASTA [Concomitant]
     Active Substance: ZOLEDRONIC ACID
     Indication: PRODUCT USED FOR UNKNOWN INDICATION
     Route: 065
     Dates: start: 20200810
  20. OXYCONTIN [Concomitant]
     Active Substance: OXYCODONE HYDROCHLORIDE
     Indication: PLASMA CELL MYELOMA
     Route: 065
     Dates: start: 20190327
  21. OXYNORMORO [Concomitant]
     Active Substance: OXYCODONE HYDROCHLORIDE
     Indication: PLASMA CELL MYELOMA
     Route: 065
     Dates: start: 20190327
  22. MACROGOL [Concomitant]
     Active Substance: POLYETHYLENE GLYCOLS
     Indication: CONSTIPATION
     Dosage: 2 DOSAGE FORMS
     Route: 048
     Dates: start: 20191112, end: 20191128
  23. MACROGOL [Concomitant]
     Active Substance: POLYETHYLENE GLYCOLS
     Dosage: 2 DOSAGE FORMS
     Route: 048
     Dates: start: 20191129

REACTIONS (1)
  - Vasculitis [Not Recovered/Not Resolved]

NARRATIVE: CASE EVENT DATE: 20200218
